FAERS Safety Report 7597989-9 (Version None)
Quarter: 2011Q3

REPORT INFORMATION
  Report Type: 
  Country: None (occurrence: None)
  Receive Date: 20110708
  Receipt Date: 20110208
  Transmission Date: 20111222
  Serious: Yes (Life-Threatening, Disabling, Other)
  Sender: FDA-Public Use
  Company Number: US-NOVOPROD-315491

PATIENT
  Sex: Female
  Weight: 91.3 kg

DRUGS (7)
  1. IDEG FLEXPEN [Suspect]
     Indication: TYPE 2 DIABETES MELLITUS
     Dosage: 120 IU, QD
     Route: 058
     Dates: start: 20090915, end: 20100913
  2. IDEG FLEXPEN [Suspect]
     Dosage: 120 IU, QD
     Route: 058
     Dates: start: 20100914
  3. CLARINEX                           /01202601/ [Concomitant]
     Indication: SEASONAL ALLERGY
     Dosage: 10 MG, PRN
     Route: 048
     Dates: start: 20080101
  4. NOVORAPID FLEXPEN [Suspect]
     Indication: TYPE 2 DIABETES MELLITUS
     Dosage: 20 IU, TID (WITH MEALS)
     Route: 058
     Dates: start: 20090915, end: 20100913
  5. HYDROCHLOROTHIAZIDE [Concomitant]
     Indication: HYPERTENSION
     Dosage: 12.5 MG, QD
     Route: 048
     Dates: start: 20080101
  6. NOVORAPID FLEXPEN [Suspect]
     Dosage: 60 IU, QD
     Route: 058
     Dates: start: 20100914
  7. DIOVAN [Concomitant]
     Indication: HYPERTENSION
     Dosage: 80 MG, QD
     Route: 048
     Dates: start: 20080101

REACTIONS (2)
  - TONGUE CARCINOMA STAGE I [None]
  - B-CELL LYMPHOMA STAGE I [None]
